FAERS Safety Report 6242060-1 (Version None)
Quarter: 2009Q2

REPORT INFORMATION
  Report Type: 
  Country: None (occurrence: None)
  Receive Date: 20090622
  Receipt Date: 20090604
  Transmission Date: 20091009
  Serious: Yes (Hospitalization, Other)
  Sender: FDA-Public Use
  Company Number: PAR_03041_2009

PATIENT
  Sex: Female
  Weight: 80.3 kg

DRUGS (12)
  1. IBUPROFEN [Suspect]
     Indication: DRUG USE FOR UNKNOWN INDICATION
     Dosage: (400 MG)
  2. RIVAROXABAN [Suspect]
     Indication: HIP ARTHROPLASTY
     Dosage: (DF ORAL)
     Route: 048
     Dates: start: 20090326, end: 20090405
  3. RIVAROXABAN [Suspect]
     Indication: THROMBOSIS PROPHYLAXIS
     Dosage: (DF ORAL)
     Route: 048
     Dates: start: 20090326, end: 20090405
  4. DIOVAN HCT [Concomitant]
  5. AMLODIPIN /00972401/ [Concomitant]
  6. ALLOPURINOL [Concomitant]
  7. SIMVASTATIN [Concomitant]
  8. FUROSEMID /00032601/ [Concomitant]
  9. PANTOZOL /01263202/ [Concomitant]
  10. PALLADON /00080902/ [Concomitant]
  11. REKAWAN [Concomitant]
  12. DREISAFER [Concomitant]

REACTIONS (6)
  - COAGULOPATHY [None]
  - DRUG INTERACTION [None]
  - HAEMATOMA [None]
  - HAEMOGLOBIN DECREASED [None]
  - POST PROCEDURAL HAEMORRHAGE [None]
  - SURGICAL PROCEDURE REPEATED [None]
